FAERS Safety Report 12660361 (Version 1)
Quarter: 2016Q3

REPORT INFORMATION
  Report Type: Spontaneous
  Country: US (occurrence: US)
  Receive Date: 20160817
  Receipt Date: 20160817
  Transmission Date: 20161109
  Serious: No
  Sender: FDA-Public Use
  Company Number: US-BAUSCH-BL-2016-014242

PATIENT
  Age: 80 Year
  Sex: Female

DRUGS (2)
  1. ACYCLOVIR. [Concomitant]
     Active Substance: ACYCLOVIR
     Indication: HERPES SIMPLEX
     Route: 048
  2. ZOVIRAX [Suspect]
     Active Substance: ACYCLOVIR
     Indication: HERPES SIMPLEX
     Dosage: ONCE AS NEEDED
     Route: 061

REACTIONS (2)
  - Expired product administered [Unknown]
  - Herpes simplex [Not Recovered/Not Resolved]

NARRATIVE: CASE EVENT DATE: 20160614
